FAERS Safety Report 8154115-5 (Version None)
Quarter: 2012Q1

REPORT INFORMATION
  Report Type: 
  Country: None (occurrence: None)
  Receive Date: 20120221
  Receipt Date: 20120213
  Transmission Date: 20120608
  Serious: Yes (Hospitalization)
  Sender: FDA-Public Use
  Company Number: JP-MERCK-1110USA02131

PATIENT
  Weight: 31 kg

DRUGS (2)
  1. CRESTOR [Suspect]
     Indication: TYPE II HYPERLIPIDAEMIA
     Dosage: THE DIVIDED DOSE FREQUENCY IS UNCERTAIN
     Route: 048
  2. ZETIA [Suspect]
     Indication: TYPE II HYPERLIPIDAEMIA
     Dosage: THE DIVIDED DOSE FREQUENCY IS UNCERTAIN
     Route: 048
     Dates: start: 20110907, end: 20111012

REACTIONS (1)
  - LIVER DISORDER [None]
